FAERS Safety Report 24684711 (Version 1)
Quarter: 2024Q4

REPORT INFORMATION
  Report Type: Spontaneous
  Country: BR (occurrence: BR)
  Receive Date: 20241202
  Receipt Date: 20241202
  Transmission Date: 20250114
  Serious: No
  Sender: ALKEM
  Company Number: BR-ALKEM LABORATORIES LIMITED-BR-ALKEM-2024-09221

PATIENT
  Age: 71 Year
  Sex: Male

DRUGS (2)
  1. ISONIAZID [Suspect]
     Active Substance: ISONIAZID
     Indication: Prophylaxis
     Dosage: UNK (TREATMENT COMPLETED)
     Route: 065
  2. ISONIAZID [Suspect]
     Active Substance: ISONIAZID
     Indication: Pulmonary tuberculosis

REACTIONS (1)
  - Treatment noncompliance [Unknown]
